FAERS Safety Report 12760918 (Version 1)
Quarter: 2016Q3

REPORT INFORMATION
  Report Type: Spontaneous
  Country: US (occurrence: US)
  Receive Date: 20160919
  Receipt Date: 20160919
  Transmission Date: 20161109
  Serious: Yes (Hospitalization)
  Sender: FDA-Public Use
  Company Number: US-ASTRAZENECA-2016SE95630

PATIENT
  Age: 70 Year
  Sex: Male
  Weight: 91.6 kg

DRUGS (20)
  1. SONATA [Concomitant]
     Active Substance: ZALEPLON
     Dates: start: 2006
  2. NAPROXEN. [Suspect]
     Active Substance: NAPROXEN
     Indication: OSTEOARTHRITIS
     Route: 048
     Dates: start: 20080328, end: 20100414
  3. VYTORIN [Concomitant]
     Active Substance: EZETIMIBE\SIMVASTATIN
     Dates: start: 2007
  4. DOXYCYCLINE. [Concomitant]
     Active Substance: DOXYCYCLINE
     Dates: start: 2007
  5. TOPROL XL [Suspect]
     Active Substance: METOPROLOL SUCCINATE
     Indication: HYPERTENSION
     Route: 048
     Dates: start: 2002
  6. NEURONTIN [Concomitant]
     Active Substance: GABAPENTIN
     Dates: start: 2003
  7. ESOMEPRAZOLE [Suspect]
     Active Substance: ESOMEPRAZOLE
     Route: 065
  8. BACTRIM DS [Concomitant]
     Active Substance: SULFAMETHOXAZOLE\TRIMETHOPRIM
     Dates: start: 2007
  9. DYAZIDE [Suspect]
     Active Substance: HYDROCHLOROTHIAZIDE\TRIAMTERENE
     Indication: HYPERTENSION
     Dosage: TDD: 75/50 MG
     Route: 048
     Dates: start: 2002
  10. ACETYLSALICYLIC ACID [Concomitant]
     Active Substance: ASPIRIN
     Dates: start: 1996
  11. TYLENOL [Concomitant]
     Active Substance: ACETAMINOPHEN
     Dates: start: 2005
  12. NEXIUM [Concomitant]
     Active Substance: ESOMEPRAZOLE MAGNESIUM
     Dates: start: 20080328
  13. SITAGLIPTIN [Concomitant]
     Active Substance: SITAGLIPTIN
     Dates: start: 2007
  14. CIPROFLOXACIN. [Concomitant]
     Active Substance: CIPROFLOXACIN
     Dates: start: 2007
  15. DIOVAN [Suspect]
     Active Substance: VALSARTAN
     Indication: HYPERTENSION
     Dosage: 160 MG, 1X/DAY
     Route: 048
     Dates: start: 2003
  16. LEVOXYL [Concomitant]
     Active Substance: LEVOTHYROXINE SODIUM
     Dates: start: 2002
  17. GLYCERYL TRINITRATE [Concomitant]
     Active Substance: NITROGLYCERIN
     Dates: start: 2000
  18. PLAVIX [Concomitant]
     Active Substance: CLOPIDOGREL BISULFATE
     Dates: start: 2006
  19. MIRAPEX [Concomitant]
     Active Substance: PRAMIPEXOLE DIHYDROCHLORIDE
     Dates: start: 2007
  20. ACTOS [Concomitant]
     Active Substance: PIOGLITAZONE HYDROCHLORIDE
     Dates: start: 2003

REACTIONS (2)
  - Hypotension [Recovered/Resolved]
  - Mental status changes [Recovered/Resolved]

NARRATIVE: CASE EVENT DATE: 20080613
